FAERS Safety Report 25789567 (Version 1)
Quarter: 2025Q3

REPORT INFORMATION
  Report Type: Spontaneous
  Country: GB (occurrence: GB)
  Receive Date: 20250911
  Receipt Date: 20250911
  Transmission Date: 20251021
  Serious: Yes (Other)
  Sender: ABBVIE
  Company Number: None

PATIENT
  Age: 31 Year
  Sex: Female
  Weight: 99 kg

DRUGS (1)
  1. LUPRON DEPOT [Suspect]
     Active Substance: LEUPROLIDE ACETATE
     Indication: Endometritis
     Route: 058
     Dates: start: 20250613, end: 20250807

REACTIONS (4)
  - Idiopathic intracranial hypertension [Not Recovered/Not Resolved]
  - Headache [Unknown]
  - Blindness [Recovered/Resolved]
  - Nausea [Unknown]

NARRATIVE: CASE EVENT DATE: 20250101
